FAERS Safety Report 21449655 (Version 1)
Quarter: 2022Q4

REPORT INFORMATION
  Report Type: Spontaneous
  Country: GB (occurrence: GB)
  Receive Date: 20221013
  Receipt Date: 20221013
  Transmission Date: 20230113
  Serious: Yes (Hospitalization, Other)
  Sender: FDA-Public Use
  Company Number: GB-PCCINC-2022-PEL-000569

PATIENT

DRUGS (11)
  1. SEVOFLURANE [Suspect]
     Active Substance: SEVOFLURANE
     Indication: General anaesthesia
     Dosage: UNK
     Route: 055
     Dates: start: 20220609, end: 20220609
  2. BUPIVACAINE [Suspect]
     Active Substance: BUPIVACAINE
     Indication: Spinal anaesthesia
     Dosage: 2.2 MILLILITER
     Route: 065
     Dates: start: 20220609, end: 20220609
  3. FENTANYL [Suspect]
     Active Substance: FENTANYL
     Indication: General anaesthesia
     Dosage: UNK
     Route: 055
     Dates: start: 20220609, end: 20220609
  4. ROCURONIUM [Suspect]
     Active Substance: ROCURONIUM BROMIDE
     Indication: General anaesthesia
     Dosage: UNK
     Route: 055
     Dates: start: 20220609, end: 20220609
  5. MORPHINE [Suspect]
     Active Substance: MORPHINE
     Indication: Spinal anaesthesia
     Dosage: 0.2 ML
     Route: 037
     Dates: start: 20220609, end: 20220609
  6. MORPHINE [Suspect]
     Active Substance: MORPHINE
     Dosage: 5 MILLIGRAM
     Route: 042
     Dates: start: 20220609, end: 20220609
  7. PROPOFOL [Suspect]
     Active Substance: PROPOFOL
     Indication: General anaesthesia
     Dosage: UNK
     Route: 055
     Dates: start: 20220609, end: 20220609
  8. ACETAMINOPHEN [Suspect]
     Active Substance: ACETAMINOPHEN
     Indication: Product used for unknown indication
     Dosage: 1 GRAM
     Route: 042
     Dates: start: 20220609, end: 20220609
  9. PHENYLEPHRINE [Concomitant]
     Active Substance: PHENYLEPHRINE HYDROCHLORIDE
     Indication: Product used for unknown indication
     Dosage: UNK
     Route: 065
  10. NALOXONE [Concomitant]
     Active Substance: NALOXONE
     Indication: Blood pressure measurement
     Dosage: UNK
     Route: 042
  11. NALOXONE [Concomitant]
     Active Substance: NALOXONE
     Indication: Respiratory rate

REACTIONS (7)
  - Depressed level of consciousness [Unknown]
  - Incorrect dose administered [Unknown]
  - Haemorrhage [Unknown]
  - Agitation [Unknown]
  - Respiratory depression [Recovered/Resolved]
  - Cyanosis [Unknown]
  - Blood pressure decreased [Recovered/Resolved]

NARRATIVE: CASE EVENT DATE: 20220609
